FAERS Safety Report 8138132-7 (Version None)
Quarter: 2012Q1

REPORT INFORMATION
  Report Type: 
  Country: None (occurrence: None)
  Receive Date: 20120215
  Receipt Date: 20120215
  Transmission Date: 20120608
  Serious: Yes (Other)
  Sender: FDA-Public Use
  Company Number: None

PATIENT
  Age: 71 Year
  Sex: Female
  Weight: 52.163 kg

DRUGS (1)
  1. ATOVAQUONE/PROGUANIL HYDROCHLORIDE [Suspect]
     Dosage: ONE PER DAY
     Dates: start: 20120205, end: 20120209

REACTIONS (6)
  - DIZZINESS [None]
  - DECREASED APPETITE [None]
  - NO REACTION ON PREVIOUS EXPOSURE TO DRUG [None]
  - HEADACHE [None]
  - VERTIGO [None]
  - DIARRHOEA [None]
